FAERS Safety Report 4836808-8 (Version None)
Quarter: 2005Q4

REPORT INFORMATION
  Report Type: 
  Country: None (occurrence: None)
  Receive Date: 20051123
  Receipt Date: 20051114
  Transmission Date: 20060501
  Serious: Yes (Hospitalization)
  Sender: FDA-Public Use
  Company Number: FR-ABBOTT-05P-056-0317227-00

PATIENT
  Age: 41 Year
  Sex: Female

DRUGS (8)
  1. ZECLAR TABLETS [Suspect]
     Indication: DRUG USE FOR UNKNOWN INDICATION
     Route: 048
     Dates: start: 20050929
  2. ESOMEPRAZOLE [Suspect]
     Indication: DRUG USE FOR UNKNOWN INDICATION
     Route: 048
     Dates: start: 20050929
  3. ACETAMINOPHEN [Suspect]
     Indication: DRUG USE FOR UNKNOWN INDICATION
     Route: 042
     Dates: start: 20050924, end: 20050927
  4. PAMIDRONATE DISODIUM [Suspect]
     Indication: BONE NEOPLASM MALIGNANT
     Route: 042
     Dates: start: 20050929, end: 20050929
  5. PAMIDRONATE DISODIUM [Suspect]
     Indication: NEOPLASM MALIGNANT
  6. METHYLPREDNISOLONE [Suspect]
     Indication: DRUG USE FOR UNKNOWN INDICATION
     Route: 048
     Dates: start: 20050924, end: 20050928
  7. GABAPENTIN [Suspect]
     Indication: DRUG USE FOR UNKNOWN INDICATION
     Route: 048
     Dates: start: 20050929
  8. POTASSIUM [Concomitant]
     Indication: DRUG USE FOR UNKNOWN INDICATION
     Dates: start: 20050929

REACTIONS (3)
  - BLOOD PRESSURE DECREASED [None]
  - PERIPHERAL COLDNESS [None]
  - SHOCK [None]
